FAERS Safety Report 17995300 (Version 1)
Quarter: 2020Q3

REPORT INFORMATION
  Report Type: Spontaneous
  Country: DK (occurrence: DK)
  Receive Date: 20200708
  Receipt Date: 20200708
  Transmission Date: 20201103
  Serious: Yes (Other)
  Sender: FDA-Public Use
  Company Number: DK-VERITY PHARMACEUTICALS, INC.-2020VTY00127

PATIENT
  Age: 77 Year
  Sex: Male

DRUGS (6)
  1. TRELSTAR [Suspect]
     Active Substance: TRIPTORELIN PAMOATE
     Indication: PROSTATE CANCER
     Dosage: 11.25 MG, 4X/YEAR (1 IN 12 WK)
     Route: 030
     Dates: start: 20171205
  2. AMLODIPIN ^KRKA^ [Concomitant]
     Indication: BLOOD PRESSURE MEASUREMENT
     Dosage: 5 MG, 1X/DAY
     Route: 048
     Dates: start: 20131031, end: 20180524
  3. GEMADOL RETARD [Concomitant]
     Active Substance: TRAMADOL HYDROCHLORIDE
     Indication: PAIN
     Dosage: 50 MG, 1X/DAY
     Route: 048
     Dates: start: 20171107, end: 20171208
  4. SIMVASTATIN ^SANDOZ^ [Concomitant]
     Active Substance: SIMVASTATIN
     Indication: HYPERCHOLESTEROLAEMIA
     Dosage: 40 MG, 1X/DAY
     Route: 048
     Dates: start: 20131031
  5. DOLOL RETARD UNO [Concomitant]
     Active Substance: TRAMADOL
     Indication: PAIN
     Dosage: 100 MG, 1X/DAY
     Route: 048
     Dates: start: 20160701, end: 20171207
  6. PINEMOL [Concomitant]
     Indication: PAIN
     Dosage: 2 TABLETS, 3X/DAY (1000MG, AS REQUIRED)
     Route: 048
     Dates: start: 20140826

REACTIONS (3)
  - Rash [Not Recovered/Not Resolved]
  - Subacute cutaneous lupus erythematosus [Not Recovered/Not Resolved]
  - Immunosuppression [Not Recovered/Not Resolved]

NARRATIVE: CASE EVENT DATE: 20171208
